FAERS Safety Report 13070960 (Version 2)
Quarter: 2017Q1

REPORT INFORMATION
  Report Type: Spontaneous
  Country: IN (occurrence: IN)
  Receive Date: 20161229
  Receipt Date: 20170106
  Transmission Date: 20170428
  Serious: Yes (Life-Threatening, Hospitalization, Other)
  Sender: FDA-Public Use
  Company Number: IN-SUN PHARMACEUTICAL INDUSTRIES LTD-2016R1-130339

PATIENT
  Age: 19 Year
  Sex: Female

DRUGS (7)
  1. CLONAZEPAM. [Suspect]
     Active Substance: CLONAZEPAM
     Indication: DEPRESSION
     Dosage: 10 TO 15 TABLETS OF VENLAFAXINE, TABLET ESCITALOPRAM AND TABLET CLONAZEPAM
     Route: 048
     Dates: start: 20150818
  2. ESCITALOPRAM [Suspect]
     Active Substance: ESCITALOPRAM OXALATE
     Dosage: UNK UNK, QD
     Route: 048
  3. ESCITALOPRAM [Suspect]
     Active Substance: ESCITALOPRAM OXALATE
     Dosage: UNK
     Route: 048
  4. VENLAFAXINE [Suspect]
     Active Substance: VENLAFAXINE HYDROCHLORIDE
     Indication: DEPRESSION
     Dosage: 10 TO 15 TABLETS OF VENLAFAXINE, TABLET ESCITALOPRAM, AND TABLET CLONAZEPAM
     Route: 048
     Dates: start: 20150818
  5. ESCITALOPRAM [Suspect]
     Active Substance: ESCITALOPRAM OXALATE
     Indication: DEPRESSION
     Dosage: 10 TO 15 TABLETS OF VENLAFAXINE, TABLET ESCITALOPRAM, AND TABLET CLONAZEPAM
     Route: 048
     Dates: start: 20150818
  6. ESCITALOPRAM [Suspect]
     Active Substance: ESCITALOPRAM OXALATE
     Dosage: UNK
     Route: 048
     Dates: start: 20150818
  7. CLONAZEPAM. [Suspect]
     Active Substance: CLONAZEPAM
     Dosage: UNK UNK, QD
     Route: 048

REACTIONS (7)
  - Hypoglycaemia [Recovered/Resolved]
  - Dizziness [Recovered/Resolved]
  - Suicidal ideation [Recovered/Resolved]
  - Intentional overdose [Recovered/Resolved]
  - Respiratory rate increased [Recovered/Resolved]
  - Headache [Recovered/Resolved]
  - Suicide attempt [Recovered/Resolved]

NARRATIVE: CASE EVENT DATE: 20150818
